FAERS Safety Report 8995846 (Version 3)
Quarter: 2013Q1

REPORT INFORMATION
  Report Type: Spontaneous
  Country: US (occurrence: US)
  Receive Date: 20130103
  Receipt Date: 20130125
  Transmission Date: 20140127
  Serious: Yes (Death)
  Sender: FDA-Public Use
  Company Number: US-BAXTER-2013BAX000072

PATIENT
  Sex: Female

DRUGS (2)
  1. DIANEAL LOW CALCIUM (ULTRABAG) [Suspect]
     Indication: PERITONEAL DIALYSIS
     Dosage: TOTAL 8L
     Route: 033
     Dates: end: 20121227
  2. EXTRANEAL [Suspect]
     Indication: PERITONEAL DIALYSIS
     Route: 033
     Dates: end: 20121227

REACTIONS (4)
  - Gastric haemorrhage [Fatal]
  - Pulmonary haemorrhage [Fatal]
  - Multi-organ failure [Fatal]
  - Coma [Fatal]
